FAERS Safety Report 10272342 (Version 1)
Quarter: 2014Q2

REPORT INFORMATION
  Report Type: Spontaneous
  Country: US (occurrence: None)
  Receive Date: 20140627
  Receipt Date: 20140627
  Transmission Date: 20141212
  Serious: Yes (Other)
  Sender: FDA-Public Use
  Company Number: SYM-2014-22097

PATIENT
  Sex: Female

DRUGS (3)
  1. NU-DERM CLEAR (HYDROQUINONE) (HYDROQUINONE) [Suspect]
     Indication: PRODUCT USED FOR UNKNOWN INDICATION
     Route: 061
  2. NU-DERM BLENDER (HYDROQUINONE) [Suspect]
     Indication: PRODUCT USED FOR UNKNOWN INDICATION
     Route: 061
  3. NU-DERM SUNFADER (SPF 15) (HYDROQUINONE AND OCTINOXATE AND OXYBENZONE) [Suspect]
     Indication: PRODUCT USED FOR UNKNOWN INDICATION
     Route: 061

REACTIONS (1)
  - Ochronosis [None]
